FAERS Safety Report 9611678 (Version 4)
Quarter: 2014Q1

REPORT INFORMATION
  Report Type: Spontaneous
  Country: US (occurrence: US)
  Receive Date: 20131010
  Receipt Date: 20140123
  Transmission Date: 20141002
  Serious: No
  Sender: FDA-Public Use
  Company Number: US-PFIZER INC-2013289122

PATIENT
  Age: 70 Year
  Sex: Female
  Weight: 81.63 kg

DRUGS (6)
  1. LYRICA [Suspect]
     Indication: PAIN
     Dosage: 1 DF, 2X/DAY
  2. LYRICA [Suspect]
     Indication: ARTHRALGIA
     Dosage: 2 DF, 2X/DAY
  3. LYRICA [Suspect]
     Indication: BACK PAIN
     Dosage: 75 MG, 2X/DAY
     Route: 048
     Dates: start: 201308, end: 20131016
  4. LYRICA [Suspect]
     Dosage: 150 MG, UNK
  5. LYRICA [Suspect]
     Dosage: 75 MG, 1X/DAY
  6. CELEBREX [Concomitant]
     Dosage: UNK

REACTIONS (10)
  - Off label use [Unknown]
  - Drug ineffective [Recovering/Resolving]
  - Pain [Not Recovered/Not Resolved]
  - Feeling abnormal [Unknown]
  - Malaise [Unknown]
  - Weight increased [Unknown]
  - Facial pain [Unknown]
  - Drug withdrawal syndrome [Unknown]
  - Tension [Unknown]
  - Hyperhidrosis [Unknown]
